FAERS Safety Report 8583242-3 (Version None)
Quarter: 2012Q3

REPORT INFORMATION
  Report Type: 
  Country: None (occurrence: None)
  Receive Date: 20120809
  Receipt Date: 20120801
  Transmission Date: 20120928
  Serious: Yes (Other)
  Sender: FDA-Public Use
  Company Number: GB-JNJFOC-20120804325

PATIENT
  Age: 67 Year
  Sex: Female

DRUGS (23)
  1. CARBOMER [Concomitant]
  2. AMITRIPTYLINE HCL [Concomitant]
  3. CHLORPHENIRAMINE TAB [Concomitant]
  4. GLYCEROL 2.6% [Concomitant]
  5. XARELTO [Suspect]
     Indication: THROMBOSIS PROPHYLAXIS
     Route: 048
     Dates: start: 20120717
  6. CARBIDOPA AND LEVODOPA [Concomitant]
  7. EPADERM [Concomitant]
  8. REPLENS [Concomitant]
  9. VAGIFEM [Concomitant]
  10. DIPROBASE [Concomitant]
  11. EUMOVATE [Concomitant]
  12. CELLUVISC [Concomitant]
  13. ELOCON [Concomitant]
  14. ASPIRIN [Concomitant]
     Dosage: (}100 MG)
  15. DURAGESIC-100 [Concomitant]
  16. CALCICHEW D3 [Concomitant]
  17. DERMOL 500 [Concomitant]
  18. OSMOTICALLY ACTING LAXATIVES [Concomitant]
  19. PROCHLORPERAZINE MALEATE [Concomitant]
  20. XARELTO [Suspect]
     Indication: HIP ARTHROPLASTY
     Route: 048
     Dates: start: 20120717
  21. DOMPERIDONE [Concomitant]
  22. PREGABALIN [Concomitant]
  23. FLUORESCEIN [Concomitant]

REACTIONS (1)
  - EMBOLISM VENOUS [None]
